FAERS Safety Report 23173368 (Version 2)
Quarter: 2023Q4

REPORT INFORMATION
  Report Type: Spontaneous
  Country: US (occurrence: US)
  Receive Date: 20231111
  Receipt Date: 20231128
  Transmission Date: 20240109
  Serious: No
  Sender: FDA-Public Use
  Company Number: US-LUPIN PHARMACEUTICALS INC.-2023-09934

PATIENT

DRUGS (1)
  1. ALBUTEROL SULFATE [Suspect]
     Active Substance: ALBUTEROL SULFATE
     Indication: Asthma
     Dosage: UNK, Q4H 1 PUFF EVERY 4 HRS
     Dates: start: 20231024

REACTIONS (4)
  - Dyspnoea [Unknown]
  - Drug dose omission by device [Unknown]
  - Device delivery system issue [Unknown]
  - Prescription drug used without a prescription [Unknown]
